FAERS Safety Report 8921913 (Version 3)
Quarter: 2012Q4

REPORT INFORMATION
  Report Type: 
  Country: US (occurrence: US)
  Receive Date: 20121121
  Receipt Date: 20121221
  Transmission Date: 20130627
  Serious: Yes (Other)
  Sender: FDA-Public Use
  Company Number: US-PFIZER INC-2012291913

PATIENT
  Age: 90 Year
  Sex: Female
  Weight: 68.02 kg

DRUGS (1)
  1. LIPITOR [Suspect]
     Indication: HIGH CHOLESTEROL
     Dosage: UNK
     Dates: start: 2001

REACTIONS (1)
  - Hypoacusis [Not Recovered/Not Resolved]
